FAERS Safety Report 5024424-7 (Version None)
Quarter: 2006Q2

REPORT INFORMATION
  Report Type: 
  Country: None (occurrence: None)
  Receive Date: 20060426
  Receipt Date: 20060228
  Transmission Date: 20061013
  Serious: Yes (Other)
  Sender: FDA-Public Use
  Company Number: 2006031597

PATIENT
  Age: 67 Year
  Sex: Female
  Weight: 68.0396 kg

DRUGS (5)
  1. LYRICA [Suspect]
     Indication: NEUROPATHY PERIPHERAL
     Dosage: 150 MG (50 MG, 2 IN 1 D)
     Dates: start: 20060101
  2. FOSAMAX [Concomitant]
  3. FOLIC ACID [Concomitant]
  4. CYANOCOBALAMIN [Concomitant]
  5. CALTRATE (CALCIUM CARBONATE) [Concomitant]

REACTIONS (3)
  - DIZZINESS [None]
  - DRY MOUTH [None]
  - SOMNOLENCE [None]
